FAERS Safety Report 9063037 (Version 3)
Quarter: 2013Q2

REPORT INFORMATION
  Report Type: Report from Study
  Country: US (occurrence: US)
  Receive Date: 20130131
  Receipt Date: 20130517
  Transmission Date: 20140414
  Serious: Yes (Life-Threatening, Hospitalization, Other)
  Sender: FDA-Public Use
  Company Number: US-ABBOTT-12P-163-1000542-00

PATIENT
  Age: 41 Year
  Sex: Female
  Weight: 79.9 kg

DRUGS (11)
  1. HUMIRA [Suspect]
     Indication: PSORIATIC ARTHROPATHY
     Dates: start: 20120823, end: 20120823
  2. HUMIRA [Suspect]
     Indication: PSORIASIS
     Dates: start: 20120830, end: 20120830
  3. HUMIRA [Suspect]
  4. STELARA [Suspect]
     Indication: PRODUCT USED FOR UNKNOWN INDICATION
     Dates: start: 201301
  5. LEVOTHYROXINE [Concomitant]
     Indication: HYPOTHYROIDISM
  6. METHOTREXATE [Concomitant]
     Indication: PRODUCT USED FOR UNKNOWN INDICATION
  7. ANTIINFLAMMATORY AGENTS [Concomitant]
     Indication: PRODUCT USED FOR UNKNOWN INDICATION
  8. CLOBETASOL [Concomitant]
     Indication: PRODUCT USED FOR UNKNOWN INDICATION
     Route: 061
  9. DOVONEX [Concomitant]
     Indication: PRODUCT USED FOR UNKNOWN INDICATION
     Route: 061
  10. TAZORAC [Concomitant]
     Indication: PRODUCT USED FOR UNKNOWN INDICATION
     Route: 061
  11. EFFEXOR [Concomitant]
     Indication: PRODUCT USED FOR UNKNOWN INDICATION

REACTIONS (28)
  - Abdominal distension [Recovered/Resolved]
  - Abdominal distension [Unknown]
  - Skin fibrosis [Unknown]
  - Postoperative wound infection [Unknown]
  - Staphylococcal infection [Unknown]
  - Fluid retention [Recovering/Resolving]
  - Weight increased [Recovering/Resolving]
  - Fatigue [Recovering/Resolving]
  - Sluggishness [Recovering/Resolving]
  - Dyspnoea [Recovering/Resolving]
  - Upper respiratory tract infection [Recovering/Resolving]
  - Fatigue [Recovered/Resolved]
  - Headache [Recovered/Resolved]
  - Local swelling [Recovered/Resolved]
  - Local swelling [Recovered/Resolved]
  - Oedema [Recovered/Resolved]
  - Blood pressure increased [Unknown]
  - Lower respiratory tract infection [Recovering/Resolving]
  - Lymphadenopathy [Unknown]
  - Lung infection [Recovered/Resolved]
  - Cough [Recovered/Resolved]
  - Respiratory tract congestion [Recovered/Resolved]
  - Abasia [Unknown]
  - Pain [Recovered/Resolved]
  - Upper respiratory tract infection [Unknown]
  - Oedema [Unknown]
  - Musculoskeletal stiffness [Recovering/Resolving]
  - Palpitations [Unknown]
